FAERS Safety Report 21360299 (Version 1)
Quarter: 2022Q3

REPORT INFORMATION
  Report Type: Spontaneous
  Country: IL (occurrence: IL)
  Receive Date: 20220921
  Receipt Date: 20220921
  Transmission Date: 20221027
  Serious: Yes (Other)
  Sender: FDA-Public Use
  Company Number: IL-NOVARTISPH-NVSC2022IL210724

PATIENT
  Age: 58 Year
  Sex: Male

DRUGS (1)
  1. CYCLOSPORINE [Suspect]
     Active Substance: CYCLOSPORINE
     Indication: Product used for unknown indication
     Dosage: UNK
     Route: 065

REACTIONS (8)
  - Acute graft versus host disease in skin [Not Recovered/Not Resolved]
  - Acute myeloid leukaemia [Unknown]
  - Myelofibrosis [Unknown]
  - Chimerism [Recovered/Resolved]
  - Platelet count decreased [Unknown]
  - Erythema [Not Recovered/Not Resolved]
  - Haemoglobin decreased [Unknown]
  - Splenomegaly [Not Recovered/Not Resolved]

NARRATIVE: CASE EVENT DATE: 20210901
